FAERS Safety Report 15375839 (Version 4)
Quarter: 2019Q1

REPORT INFORMATION
  Report Type: Spontaneous
  Country: US (occurrence: US)
  Receive Date: 20180912
  Receipt Date: 20190111
  Transmission Date: 20190417
  Serious: Yes (Hospitalization, Other)
  Sender: FDA-Public Use
  Company Number: US-ACTELION-A-NJ2018-177193

PATIENT
  Age: 57 Year
  Sex: Male

DRUGS (3)
  1. OPSUMIT [Suspect]
     Active Substance: MACITENTAN
     Indication: PULMONARY ARTERIAL HYPERTENSION
     Dosage: 10 MG, QD
     Route: 048
     Dates: start: 20180425
  2. ADEMPAS [Concomitant]
     Active Substance: RIOCIGUAT
  3. UPTRAVI [Suspect]
     Active Substance: SELEXIPAG
     Indication: PULMONARY ARTERIAL HYPERTENSION
     Dosage: 1200 MCG, BID
     Route: 048
     Dates: start: 20170601

REACTIONS (11)
  - Lethargy [Recovered/Resolved]
  - Headache [Unknown]
  - Dizziness [Unknown]
  - Malaise [Recovered/Resolved]
  - Blood pressure decreased [Unknown]
  - Haemorrhage [Unknown]
  - Heart rate decreased [Not Recovered/Not Resolved]
  - Myalgia [Unknown]
  - Abdominal discomfort [Unknown]
  - Confusional state [Recovered/Resolved]
  - Muscle spasms [Not Recovered/Not Resolved]

NARRATIVE: CASE EVENT DATE: 201808
